FAERS Safety Report 24911318 (Version 1)
Quarter: 2025Q1

REPORT INFORMATION
  Report Type: Spontaneous
  Country: US (occurrence: US)
  Receive Date: 20250131
  Receipt Date: 20250131
  Transmission Date: 20250409
  Serious: Yes (Other)
  Sender: NOVARTIS
  Company Number: US-002147023-NVSC2025US015149

PATIENT
  Age: 19 Year
  Sex: Female

DRUGS (1)
  1. TRAMETINIB [Suspect]
     Active Substance: TRAMETINIB
     Indication: Wyburn Mason^s syndrome
     Route: 065

REACTIONS (5)
  - Carotid artery thrombosis [Recovering/Resolving]
  - Monocular vision [Recovering/Resolving]
  - Blindness unilateral [Recovering/Resolving]
  - Sensory loss [Recovering/Resolving]
  - Product use in unapproved indication [Unknown]
